FAERS Safety Report 20091037 (Version 5)
Quarter: 2022Q2

REPORT INFORMATION
  Report Type: Spontaneous
  Country: US (occurrence: US)
  Receive Date: 20211119
  Receipt Date: 20220627
  Transmission Date: 20220720
  Serious: No
  Sender: FDA-Public Use
  Company Number: US-PFIZER INC-2021583553

PATIENT
  Age: 60 Year
  Sex: Female

DRUGS (2)
  1. XELJANZ XR [Suspect]
     Active Substance: TOFACITINIB CITRATE
     Indication: Rheumatoid arthritis
     Dosage: 11 MG, DAILY
     Route: 048
     Dates: start: 2017, end: 2017
  2. XELJANZ XR [Suspect]
     Active Substance: TOFACITINIB CITRATE
     Dosage: 11 MG, DAILY
     Route: 048
     Dates: start: 202202

REACTIONS (7)
  - Arthralgia [Unknown]
  - Malaise [Unknown]
  - Illness [Unknown]
  - Cough [Unknown]
  - Dizziness [Unknown]
  - Discouragement [Unknown]
  - Depression [Unknown]

NARRATIVE: CASE EVENT DATE: 20210101
